FAERS Safety Report 13800913 (Version 1)
Quarter: 2017Q3

REPORT INFORMATION
  Report Type: Spontaneous
  Country: IT (occurrence: IT)
  Receive Date: 20170727
  Receipt Date: 20170727
  Transmission Date: 20171127
  Serious: Yes (Death, Other)
  Sender: FDA-Public Use
  Company Number: IT-PFIZER INC-729685

PATIENT
  Age: 58 Year
  Sex: Male

DRUGS (5)
  1. PROLEUKIN [Suspect]
     Active Substance: ALDESLEUKIN
     Indication: PRODUCT USED FOR UNKNOWN INDICATION
     Dosage: UNK
     Route: 065
  2. HYDROXYUREA. [Concomitant]
     Active Substance: HYDROXYUREA
     Indication: PRODUCT USED FOR UNKNOWN INDICATION
     Dosage: UNK
  3. CYTARABINE. [Suspect]
     Active Substance: CYTARABINE
     Indication: PRODUCT USED FOR UNKNOWN INDICATION
     Dosage: 170 MG, DAILY
     Route: 065
     Dates: start: 20071022
  4. VP-16 [Suspect]
     Active Substance: ETOPOSIDE
     Dosage: 82 MG, DAILY
     Dates: start: 20071022, end: 20071026
  5. DAUNORUBICIN [Suspect]
     Active Substance: DAUNORUBICIN
     Dosage: 82 MG, DAILY
     Dates: start: 20071022, end: 20071026

REACTIONS (5)
  - Vomiting [Unknown]
  - Septic shock [Fatal]
  - Intestinal dilatation [Unknown]
  - Abdominal pain [Unknown]
  - Febrile neutropenia [Unknown]

NARRATIVE: CASE EVENT DATE: 20071027
